FAERS Safety Report 8926543 (Version 2)
Quarter: 2015Q1

REPORT INFORMATION
  Report Type: Report from Study
  Country: GB (occurrence: GB)
  Receive Date: 20121127
  Receipt Date: 20150226
  Transmission Date: 20150721
  Serious: Yes (Life-Threatening, Hospitalization, Other)
  Sender: FDA-Public Use
  Company Number: GB-ROCHE-1155478

PATIENT
  Sex: Female
  Weight: 48 kg

DRUGS (2)
  1. RITUXIMAB [Suspect]
     Active Substance: RITUXIMAB
     Indication: RHEUMATOID ARTHRITIS
     Dosage: DATE OF LAST DOSE PRIOR TO SAE 31/JUL/2014
     Route: 042
     Dates: start: 20090728
  2. METHOTREXATE [Concomitant]
     Active Substance: METHOTREXATE
     Route: 065
     Dates: start: 2001, end: 20120118

REACTIONS (6)
  - Chest pain [Unknown]
  - Lower respiratory tract infection [Unknown]
  - Productive cough [Unknown]
  - Dyspnoea [Unknown]
  - Pulmonary cavitation [Unknown]
  - Weight decreased [Unknown]
